FAERS Safety Report 5799654-7 (Version None)
Quarter: 2008Q3

REPORT INFORMATION
  Report Type: 
  Country: None (occurrence: None)
  Receive Date: 20080702
  Receipt Date: 20080702
  Transmission Date: 20090109
  Serious: Yes (Other)
  Sender: FDA-Public Use
  Company Number: None

PATIENT
  Sex: Female
  Weight: 89.8122 kg

DRUGS (1)
  1. DIGITEK ACTAVIS [Suspect]
     Indication: ATRIAL FIBRILLATION
     Dosage: 1 PO DAILY
     Route: 048
     Dates: start: 20080228

REACTIONS (3)
  - ATRIAL FIBRILLATION [None]
  - CHEST PAIN [None]
  - PAIN IN EXTREMITY [None]
